FAERS Safety Report 19441224 (Version 2)
Quarter: 2021Q2

REPORT INFORMATION
  Report Type: Report from Study
  Country: CO (occurrence: CO)
  Receive Date: 20210621
  Receipt Date: 20210628
  Transmission Date: 20210717
  Serious: Yes (Hospitalization)
  Sender: FDA-Public Use
  Company Number: NVSC2021CO123379

PATIENT
  Age: 2 Year
  Sex: Female
  Weight: 14.7 kg

DRUGS (4)
  1. BECLOMETASONE DIPROPIONATE [Concomitant]
     Active Substance: BECLOMETHASONE DIPROPIONATE
     Indication: HYPERSENSITIVITY
  2. FERRIC SULFATE [Concomitant]
     Active Substance: FERRIC SULFATE
     Indication: HAEMOGLOBIN DECREASED
     Dosage: 5 MG, QD (SINCE 10 DAYS AGO)
     Route: 048
  3. BECLOMETASONE DIPROPIONATE [Concomitant]
     Active Substance: BECLOMETHASONE DIPROPIONATE
     Indication: RHINITIS ALLERGIC
     Dosage: UNK UNK, QD (1 PUFF)(SINCE 10 DAYS AGO)
     Route: 055
  4. REVOLADE [Suspect]
     Active Substance: ELTROMBOPAG OLAMINE
     Indication: IMMUNE THROMBOCYTOPENIA
     Dosage: 25 MG, QD
     Route: 048
     Dates: start: 202105

REACTIONS (3)
  - Epistaxis [Unknown]
  - Platelet count abnormal [Unknown]
  - Platelet count decreased [Unknown]

NARRATIVE: CASE EVENT DATE: 20210527
